FAERS Safety Report 23465189 (Version 1)
Quarter: 2024Q1

REPORT INFORMATION
  Report Type: Spontaneous
  Country: US (occurrence: US)
  Receive Date: 20240201
  Receipt Date: 20240201
  Transmission Date: 20240410
  Serious: Yes (Life-Threatening, Hospitalization, Other)
  Sender: FDA-Public Use
  Company Number: US-MLMSERVICE-20240111-4769515-1

PATIENT
  Age: 59 Year
  Sex: Female

DRUGS (2)
  1. BUPIVACAINE [Suspect]
     Active Substance: BUPIVACAINE
     Indication: Occipital neuralgia
     Dosage: UNKNOWN (TREATMENT CYCLE -TRIGGER POINT INJECTIONS INTO BILATERAL GREATER OCCIPITAL NERVES AND TRAPE
     Route: 065
  2. BUPIVACAINE [Suspect]
     Active Substance: BUPIVACAINE
     Indication: Myofascial pain syndrome

REACTIONS (3)
  - Cardiac failure acute [Recovering/Resolving]
  - Left ventricular dysfunction [Recovering/Resolving]
  - Acute myocardial infarction [Recovering/Resolving]
